FAERS Safety Report 7895314-7 (Version None)
Quarter: 2011Q4

REPORT INFORMATION
  Report Type: 
  Country: None (occurrence: None)
  Receive Date: 20111106
  Receipt Date: 20110825
  Transmission Date: 20120403
  Serious: No
  Sender: FDA-Public Use
  Company Number: US-AMGEN-USASP2011041261

PATIENT
  Age: 37 Year
  Sex: Female
  Weight: 65.76 kg

DRUGS (3)
  1. CELEXA                             /01400501/ [Concomitant]
     Dosage: 40 MG, QD
     Route: 048
  2. PREDNISONE [Concomitant]
     Dosage: 5 MG, QD
     Route: 048
  3. ENBREL [Suspect]
     Indication: PSORIASIS
     Dosage: 50 MG, 2 TIMES/WK
     Route: 058
     Dates: start: 20110706

REACTIONS (1)
  - WEIGHT INCREASED [None]
